FAERS Safety Report 6268858-1 (Version None)
Quarter: 2009Q3

REPORT INFORMATION
  Report Type: 
  Country: None (occurrence: None)
  Receive Date: 20090709
  Receipt Date: 20090709
  Transmission Date: 20100115
  Serious: Yes (Hospitalization)
  Sender: FDA-Public Use
  Company Number: None

PATIENT
  Sex: Male
  Weight: 125.1928 kg

DRUGS (3)
  1. EVEROLIMUS 5 MG [Suspect]
     Indication: GLIOBLASTOMA MULTIFORME
     Dosage: 10 MG DAILY PO FIRST DOSE
     Route: 048
     Dates: start: 20090706, end: 20090706
  2. BEVACIZUMAB [Concomitant]
  3. DIPHENHYDRAMINE HCL [Concomitant]

REACTIONS (4)
  - CHILLS [None]
  - HYPOTENSION [None]
  - OXYGEN SATURATION DECREASED [None]
  - TREMOR [None]
